FAERS Safety Report 17686441 (Version 1)
Quarter: 2020Q2

REPORT INFORMATION
  Report Type: Spontaneous
  Country: US (occurrence: US)
  Receive Date: 20200420
  Receipt Date: 20200420
  Transmission Date: 20200714
  Serious: No
  Sender: FDA-Public Use
  Company Number: US-AMGEN-USASP2020062617

PATIENT
  Age: 60 Year
  Sex: Female
  Weight: 58 kg

DRUGS (4)
  1. ENBREL [Suspect]
     Active Substance: ETANERCEPT
     Indication: RHEUMATOID ARTHRITIS
     Dosage: UNK, MONTHLY (INJECTION ONCE MONTHLY IN STOMACH OR LEG)
     Route: 065
     Dates: start: 2005, end: 2012
  2. LEFLUNOMIDE. [Concomitant]
     Active Substance: LEFLUNOMIDE
     Indication: RHEUMATOID ARTHRITIS
     Dosage: 20 MG, DAILY
     Route: 048
  3. SIMPONI [Suspect]
     Active Substance: GOLIMUMAB
     Indication: RHEUMATOID ARTHRITIS
     Dosage: UNK, MONTHLY (UNSURE DOSE, INJECTION ONCE MONTHLY IN STOMACH OR LEG)
     Route: 065
     Dates: start: 2005, end: 2012
  4. HYDROXYCHLOROQUINE SULFATE. [Concomitant]
     Active Substance: HYDROXYCHLOROQUINE SULFATE
     Indication: RHEUMATOID ARTHRITIS
     Dosage: UNK, DAILY (200MG, 1 1/2 TABLETS BY MOUTH DAILY)
     Route: 048

REACTIONS (1)
  - Drug ineffective [Not Recovered/Not Resolved]
